FAERS Safety Report 13230312 (Version 1)
Quarter: 2017Q1

REPORT INFORMATION
  Report Type: Spontaneous
  Country: US (occurrence: US)
  Receive Date: 20170214
  Receipt Date: 20170214
  Transmission Date: 20170428
  Serious: No
  Sender: FDA-Public Use
  Company Number: None

PATIENT
  Age: 53 Year
  Sex: Female
  Weight: 110.2 kg

DRUGS (7)
  1. SPIRONOLACTONE. [Concomitant]
     Active Substance: SPIRONOLACTONE
  2. LOSARTAN. [Concomitant]
     Active Substance: LOSARTAN
  3. FLUTICASONE. [Concomitant]
     Active Substance: FLUTICASONE
  4. METOPROLOL TART 50MG TAB LEG [Suspect]
     Active Substance: METOPROLOL TARTRATE
     Indication: HYPERTENSION
     Dosage: ?          QUANTITY:60 TABLET(S);?
     Route: 048
     Dates: start: 20170120, end: 20170202
  5. TYLENOL [Concomitant]
     Active Substance: ACETAMINOPHEN
  6. LABETALOL [Concomitant]
     Active Substance: LABETALOL\LABETALOL HYDROCHLORIDE
  7. IBUPROPHEN [Concomitant]
     Active Substance: IBUPROFEN

REACTIONS (10)
  - Dyspnoea [None]
  - Diarrhoea [None]
  - Feeling abnormal [None]
  - Fatigue [None]
  - Asthenia [None]
  - Visual acuity reduced [None]
  - Blood pressure increased [None]
  - Chest discomfort [None]
  - Drug intolerance [None]
  - Disturbance in attention [None]

NARRATIVE: CASE EVENT DATE: 20170202
